FAERS Safety Report 7515962-3 (Version None)
Quarter: 2011Q2

REPORT INFORMATION
  Report Type: 
  Country: None (occurrence: None)
  Receive Date: 20110601
  Receipt Date: 20110526
  Transmission Date: 20111010
  Serious: No
  Sender: FDA-Public Use
  Company Number: US-ROXANE LABORATORIES, INC.-2011-RO-00650RO

PATIENT
  Sex: Female
  Weight: 48 kg

DRUGS (6)
  1. FLUTICASONE PROPIONATE [Suspect]
     Indication: RHINITIS ALLERGIC
     Route: 045
     Dates: start: 20110301, end: 20110401
  2. FLUTICASONE PROPIONATE [Suspect]
     Route: 045
     Dates: start: 20110401, end: 20110505
  3. ESTRACE [Concomitant]
  4. AFRIN [Concomitant]
     Dates: start: 20110430, end: 20110430
  5. SYNTHROID [Concomitant]
     Indication: HYPOTHYROIDISM
     Dates: start: 20040101
  6. ACIPHEX [Concomitant]
     Indication: GASTROOESOPHAGEAL REFLUX DISEASE
     Dosage: 20 MG

REACTIONS (2)
  - NASOPHARYNGITIS [None]
  - DRY EYE [None]
